FAERS Safety Report 25687918 (Version 2)
Quarter: 2025Q3

REPORT INFORMATION
  Report Type: Report from Study
  Country: EU (occurrence: EU)
  Receive Date: 20250817
  Receipt Date: 20250821
  Transmission Date: 20251021
  Serious: Yes (Life-Threatening, Hospitalization, Other)
  Sender: ABBVIE
  Company Number: EU-ABBVIE-5281813

PATIENT
  Age: 73 Year
  Sex: Male
  Weight: 90 kg

DRUGS (34)
  1. VENETOCLAX [Suspect]
     Active Substance: VENETOCLAX
     Indication: Chronic lymphocytic leukaemia
     Dosage: 200 MILLIGRAM
     Route: 048
     Dates: start: 20201014, end: 20201020
  2. VENETOCLAX [Suspect]
     Active Substance: VENETOCLAX
     Indication: Chronic lymphocytic leukaemia
     Dosage: 20 MILLIGRAM
     Route: 048
     Dates: start: 20200923, end: 20200929
  3. VENETOCLAX [Suspect]
     Active Substance: VENETOCLAX
     Indication: Chronic lymphocytic leukaemia
     Dosage: 400 MILLIGRAM
     Route: 048
     Dates: start: 20201021
  4. VENETOCLAX [Suspect]
     Active Substance: VENETOCLAX
     Indication: Chronic lymphocytic leukaemia
     Dosage: 50 MILLIGRAM
     Route: 048
     Dates: start: 20200930, end: 20201006
  5. VENETOCLAX [Suspect]
     Active Substance: VENETOCLAX
     Indication: Chronic lymphocytic leukaemia
     Dosage: 100 MILLIGRAM
     Route: 048
     Dates: start: 20201007, end: 20201013
  6. VENETOCLAX [Suspect]
     Active Substance: VENETOCLAX
     Indication: Chronic lymphocytic leukaemia
     Route: 048
     Dates: end: 20240814
  7. VENETOCLAX [Suspect]
     Active Substance: VENETOCLAX
     Indication: Chronic lymphocytic leukaemia
     Route: 048
     Dates: start: 20200912
  8. CEFIXIME [Concomitant]
     Active Substance: CEFIXIME
     Indication: Bacterial test positive
     Dates: start: 20200925, end: 20201001
  9. WARFARIN SODIUM [Concomitant]
     Active Substance: WARFARIN SODIUM
     Indication: Anticoagulant therapy
     Dates: start: 2019, end: 202009
  10. LOPERAMIDE [Concomitant]
     Active Substance: LOPERAMIDE
     Indication: Prophylaxis against diarrhoea
     Dates: start: 20201013, end: 20201015
  11. LOPERAMIDE [Concomitant]
     Active Substance: LOPERAMIDE
     Indication: Prophylaxis against diarrhoea
     Dates: start: 20201020, end: 20201022
  12. MITOMYCIN [Concomitant]
     Active Substance: MITOMYCIN
     Indication: Bladder instillation procedure
     Dates: start: 20201028, end: 20201028
  13. MITOMYCIN [Concomitant]
     Active Substance: MITOMYCIN
     Indication: Bladder instillation procedure
     Dates: start: 20201007, end: 20201007
  14. MITOMYCIN [Concomitant]
     Active Substance: MITOMYCIN
     Indication: Bladder instillation procedure
     Dates: start: 20200930, end: 20200930
  15. MITOMYCIN [Concomitant]
     Active Substance: MITOMYCIN
     Indication: Bladder instillation procedure
     Dates: start: 20200923, end: 20200923
  16. MITOMYCIN [Concomitant]
     Active Substance: MITOMYCIN
     Indication: Bladder instillation procedure
     Dates: start: 20201014, end: 20201014
  17. MITOMYCIN [Concomitant]
     Active Substance: MITOMYCIN
     Indication: Bladder instillation procedure
     Dates: start: 20201021, end: 20201021
  18. COTRIMOXAZOLE [Concomitant]
     Active Substance: SULFAMETHOXAZOLE\TRIMETHOPRIM
     Indication: Infection prophylaxis
     Dates: start: 20201026
  19. COLCHICINE [Concomitant]
     Active Substance: COLCHICINE
     Indication: Gout
     Dates: start: 20210201, end: 20210206
  20. COLCHICINE [Concomitant]
     Active Substance: COLCHICINE
     Indication: Gout
     Dates: start: 20240917
  21. INDAPAMIDE\PERINDOPRIL ARGININE [Concomitant]
     Active Substance: INDAPAMIDE\PERINDOPRIL ARGININE
     Indication: General physical health deterioration
     Dates: start: 202009
  22. COVID-19 vaccine [Concomitant]
     Indication: COVID-19 immunisation
     Dates: start: 20210201, end: 202110
  23. VALACYCLOVIR HYDROCHLORIDE [Concomitant]
     Active Substance: VALACYCLOVIR HYDROCHLORIDE
     Indication: Antiviral prophylaxis
     Dates: start: 200601
  24. RASBURICASE [Concomitant]
     Active Substance: RASBURICASE
     Indication: Prophylaxis
     Dates: start: 20201008, end: 20201008
  25. RASBURICASE [Concomitant]
     Active Substance: RASBURICASE
     Indication: Prophylaxis
     Dates: start: 20201001, end: 20201001
  26. RASBURICASE [Concomitant]
     Active Substance: RASBURICASE
     Indication: Prophylaxis
     Dates: start: 20200923, end: 20200923
  27. SODIUM CHLORIDE [Concomitant]
     Active Substance: SODIUM CHLORIDE
     Indication: Fluid replacement
     Dates: start: 20201006, end: 20201008
  28. SODIUM CHLORIDE [Concomitant]
     Active Substance: SODIUM CHLORIDE
     Indication: Fluid replacement
     Dates: start: 20200922, end: 20200924
  29. HIZENTRA [Concomitant]
     Active Substance: HUMAN IMMUNOGLOBULIN G
     Indication: Infection prophylaxis
     Dates: start: 201210
  30. PENTACARINAT [Concomitant]
     Active Substance: PENTAMIDINE ISETHIONATE
     Indication: Infection prophylaxis
     Dates: start: 202009
  31. FEBUXOSTAT [Concomitant]
     Active Substance: FEBUXOSTAT
     Indication: Prophylaxis
     Dates: start: 20210201
  32. APIXABAN [Concomitant]
     Active Substance: APIXABAN
     Indication: Anticoagulant therapy
     Dates: start: 202009
  33. PANTOPRAZOLE [Concomitant]
     Active Substance: PANTOPRAZOLE
     Indication: Gastrointestinal disorder prophylaxis
     Dates: start: 20240917
  34. CUVITRU [Concomitant]
     Active Substance: HUMAN IMMUNOGLOBULIN G
     Indication: Infection prophylaxis
     Dates: start: 20241011

REACTIONS (17)
  - Urinary tract infection [Recovered/Resolved]
  - Syncope [Recovered/Resolved]
  - Thrombocytopenia [Not Recovered/Not Resolved]
  - Salmonellosis [Recovered/Resolved]
  - Hyperuricaemia [Not Recovered/Not Resolved]
  - Liver function test increased [Recovered/Resolved]
  - Bronchitis [Not Recovered/Not Resolved]
  - Diarrhoea [Recovered/Resolved]
  - Actinic keratosis [Recovered/Resolved]
  - Vertigo [Not Recovered/Not Resolved]
  - Parvovirus B19 infection [Recovered/Resolved with Sequelae]
  - Anaemia [Recovered/Resolved]
  - Dizziness [Recovered/Resolved]
  - Neck pain [Recovered/Resolved]
  - Type 1 diabetes mellitus [Not Recovered/Not Resolved]
  - Myelodysplastic syndrome [Not Recovered/Not Resolved]
  - Asthenia [Recovered/Resolved]

NARRATIVE: CASE EVENT DATE: 20200922
